FAERS Safety Report 8711696 (Version 2)
Quarter: 2012Q4

REPORT INFORMATION
  Report Type: 
  Country: AU (occurrence: AU)
  Receive Date: 20120807
  Receipt Date: 20120829
  Transmission Date: 20130627
  Serious: Yes (Other)
  Sender: FDA-Public Use
  Company Number: PHHY2012AU066730

PATIENT
  Age: 60 None
  Sex: Female

DRUGS (1)
  1. GILENYA [Suspect]
     Indication: MULTIPLE SCLEROSIS
     Dosage: 0.5 mg daily
     Route: 048
     Dates: start: 20110823, end: 20120707

REACTIONS (1)
  - Breast cancer [Recovered/Resolved]
